FAERS Safety Report 5292643-0 (Version None)
Quarter: 2007Q2

REPORT INFORMATION
  Report Type: 
  Country: None (occurrence: None)
  Receive Date: 20070404
  Receipt Date: 20070327
  Transmission Date: 20071010
  Serious: Yes (Hospitalization)
  Sender: FDA-Public Use
  Company Number: 154524ISR

PATIENT
  Age: 86 Year
  Sex: Female

DRUGS (2)
  1. MIRTAZAPINE [Suspect]
     Indication: ANXIETY
     Dates: start: 20061214
  2. MIRTAZAPINE [Suspect]
     Indication: DEPRESSION
     Dates: start: 20061214

REACTIONS (2)
  - BURNING SENSATION [None]
  - INSOMNIA [None]
